FAERS Safety Report 5430468-3 (Version None)
Quarter: 2007Q3

REPORT INFORMATION
  Report Type: 
  Country: None (occurrence: None)
  Receive Date: 20070731
  Receipt Date: 20070525
  Transmission Date: 20080115
  Serious: No
  Sender: FDA-Public Use
  Company Number: US200705002311

PATIENT
  Age: 51 Year
  Sex: Male
  Weight: 108.8 kg

DRUGS (5)
  1. BYETTA [Suspect]
     Indication: TYPE 2 DIABETES MELLITUS
     Dosage: 5 UG, 2/D, SUBCUTANEOUS 1- UG, 2/D, SUBCUTANEOUS
     Route: 058
     Dates: start: 20060901, end: 20070101
  2. BYETTA [Suspect]
     Indication: TYPE 2 DIABETES MELLITUS
     Dosage: 5 UG, 2/D, SUBCUTANEOUS 1- UG, 2/D, SUBCUTANEOUS
     Route: 058
     Dates: start: 20070101, end: 20070101
  3. BYETTA [Suspect]
     Indication: TYPE 2 DIABETES MELLITUS
     Dosage: 5 UG, 2/D, SUBCUTANEOUS 1- UG, 2/D, SUBCUTANEOUS
     Route: 058
     Dates: start: 20070101
  4. GLUCOPHAGE [Concomitant]
  5. ASPIRIN [Concomitant]

REACTIONS (9)
  - BLOOD GLUCOSE DECREASED [None]
  - DIZZINESS [None]
  - DYSGEUSIA [None]
  - EUPHORIC MOOD [None]
  - MENTAL IMPAIRMENT [None]
  - PRESYNCOPE [None]
  - SOMNOLENCE [None]
  - TREMOR [None]
  - WEIGHT DECREASED [None]
